FAERS Safety Report 15108997 (Version 1)
Quarter: 2018Q3

REPORT INFORMATION
  Report Type: Spontaneous
  Country: US (occurrence: US)
  Receive Date: 20180705
  Receipt Date: 20180705
  Transmission Date: 20181010
  Serious: No
  Sender: FDA-Public Use
  Company Number: US-GLENMARK PHARMACEUTICALS-2018GMK034906

PATIENT

DRUGS (5)
  1. TELMISARTAN TABLETS [Suspect]
     Active Substance: TELMISARTAN
     Dosage: 40 MG, OD
     Route: 048
     Dates: start: 2017, end: 2017
  2. AMLODIPINE [Concomitant]
     Active Substance: AMLODIPINE BESYLATE
     Indication: HYPERTENSION
     Dosage: 7 MG, UNK
     Route: 048
  3. TELMISARTAN TABLETS [Suspect]
     Active Substance: TELMISARTAN
     Indication: HYPERTENSION
     Dosage: 20 MG, OD
     Route: 048
     Dates: start: 2016, end: 2017
  4. TELMISARTAN TABLETS [Suspect]
     Active Substance: TELMISARTAN
     Dosage: 60 MG, UNK
     Route: 048
     Dates: start: 2017, end: 2017
  5. TELMISARTAN TABLETS [Suspect]
     Active Substance: TELMISARTAN
     Indication: HYPERTENSION
     Dosage: UNK UNK, OD
     Route: 048
     Dates: start: 201708, end: 20180305

REACTIONS (4)
  - Sputum retention [Recovering/Resolving]
  - Urinary tract infection [Unknown]
  - Cough [Recovering/Resolving]
  - Drug ineffective [Unknown]

NARRATIVE: CASE EVENT DATE: 2016
